FAERS Safety Report 16789048 (Version 1)
Quarter: 2019Q3

REPORT INFORMATION
  Report Type: Spontaneous
  Country: IL (occurrence: IL)
  Receive Date: 20190910
  Receipt Date: 20190910
  Transmission Date: 20191005
  Serious: Yes (Other)
  Sender: FDA-Public Use
  Company Number: IL-HORIZON-KRY-0529-2019

PATIENT
  Age: 73 Year
  Sex: Male

DRUGS (1)
  1. KRYSTEXXA [Suspect]
     Active Substance: PEGLOTICASE
     Indication: PRODUCT USED FOR UNKNOWN INDICATION
     Dates: start: 20190702

REACTIONS (4)
  - Dehydration [Unknown]
  - Therapy cessation [Unknown]
  - Gout [Unknown]
  - Renal impairment [Recovered/Resolved]
